FAERS Safety Report 12765391 (Version 1)
Quarter: 2016Q3

REPORT INFORMATION
  Report Type: Spontaneous
  Country: US (occurrence: US)
  Receive Date: 20160921
  Receipt Date: 20160921
  Transmission Date: 20161109
  Serious: Yes (Other)
  Sender: FDA-Public Use
  Company Number: US-JNJCP-30000354194

PATIENT
  Sex: Male
  Weight: 32 kg

DRUGS (3)
  1. AVEENO BABY DAILY MOISTURE [Suspect]
     Active Substance: DIMETHICONE
     Indication: ECZEMA
     Dosage: ONCE A DAY
     Route: 061
  2. UNSPECIFIED PRODUCTS [Concomitant]
     Active Substance: UNSPECIFIED INGREDIENT
     Indication: PRODUCT USED FOR UNKNOWN INDICATION
  3. AVEENO BABY DAILY MOISTURE [Suspect]
     Active Substance: DIMETHICONE
     Indication: ECZEMA
     Dosage: ENOUGH TO COVER THE WHOLE BODY ONE THIRD OF PACKET PER DAY FOR SIX YEARS
     Route: 061
     Dates: end: 20160904

REACTIONS (1)
  - Seizure [Recovering/Resolving]
